FAERS Safety Report 23220118 (Version 1)
Quarter: 2023Q4

REPORT INFORMATION
  Report Type: Spontaneous
  Country: AT (occurrence: AT)
  Receive Date: 20231123
  Receipt Date: 20231123
  Transmission Date: 20240109
  Serious: Yes (Hospitalization)
  Sender: FDA-Public Use
  Company Number: AT-CELLTRION INC.-2023AT022338

PATIENT

DRUGS (22)
  1. TRASTUZUMAB [Suspect]
     Active Substance: TRASTUZUMAB
     Indication: Breast cancer metastatic
     Dosage: 354 MG, EVERY 3 WEEKS (MOST RECENT DOSE PRIOR TO THE EVENT: 27/FEB/2020 1 TIMES PER 3 WEEKS)
     Route: 042
     Dates: start: 20160629, end: 20180621
  2. DENOSUMAB [Suspect]
     Active Substance: DENOSUMAB
     Indication: Breast cancer metastatic
     Dosage: 120 MG, Q4WEEKS (MOST RECENT DOSE ADMINISTERED ON /JAN/2021 1 TIMES PER 4 WEEKS)
     Route: 058
     Dates: start: 20161121
  3. PALBOCICLIB [Suspect]
     Active Substance: PALBOCICLIB
     Indication: Breast cancer metastatic
     Dosage: MOST RECENT DOSE ADMINISTERED ON /DEC/2020
     Route: 048
     Dates: start: 202011, end: 202012
  4. PERTUZUMAB [Suspect]
     Active Substance: PERTUZUMAB
     Indication: Breast cancer metastatic
     Dosage: 420 MG, EVERY 3 WEEKS 9MOST RECENT DOSE PRIOR TO THE EVENT: 27/FEB/2020 1 TIMES PER 3 WEEKS)
     Route: 042
     Dates: start: 20160629, end: 20180601
  5. FULVESTRANT [Suspect]
     Active Substance: FULVESTRANT
     Indication: Breast cancer metastatic
     Dosage: 500 MG, EVERY 4 WEEKS (MOST RECENT DOSE ADMINISTERED ON /OCT/2021 1 TIMES IN 4 WEEKS)
     Route: 030
     Dates: start: 20200716
  6. CAPECITABINE [Suspect]
     Active Substance: CAPECITABINE
     Indication: Breast cancer metastatic
     Dosage: 3000 MG (MOST RECENT DOSE ADMINISTERED ON /FEB/2022)
     Route: 048
     Dates: start: 20211025, end: 202201
  7. CAPECITABINE [Suspect]
     Active Substance: CAPECITABINE
     Dosage: 2500 MG
     Route: 048
     Dates: start: 20220118
  8. RIBOCICLIB [Suspect]
     Active Substance: RIBOCICLIB
     Indication: Breast cancer metastatic
     Dosage: 600 MG (MOST RECENT DOSE ADMINISTERED ON 24/NOV/2020)
     Route: 048
     Dates: start: 20200716, end: 202008
  9. RIBOCICLIB [Suspect]
     Active Substance: RIBOCICLIB
     Dosage: 400 MG (MOST RECENT DOSE ADMINISTERED ON 18/NOV/2020)
     Route: 048
     Dates: start: 20200824
  10. DOCETAXEL [Suspect]
     Active Substance: DOCETAXEL\DOCETAXEL ANHYDROUS
     Indication: Breast cancer metastatic
     Dosage: 80 MG/M2, EVERY 3 WEEKS (MOST RECENT DOSE ADMINISTERED ON 13/OCT/2016 1 TIMES PER 3 WEEKS, AMOUNT PE
     Route: 042
     Dates: start: 20160629
  11. LETROZOLE [Suspect]
     Active Substance: LETROZOLE
     Indication: Breast cancer metastatic
     Dosage: 2.5 MG, ONCE A DAY (MOST RECENT DOSE ADMINISTERED ON 29/JUN/2020 1 TIME PER DAY)
     Route: 048
     Dates: start: 20161021
  12. METHYLPREDNISOLONE ACEPONATE [Concomitant]
     Active Substance: METHYLPREDNISOLONE ACEPONATE
     Indication: Palmar-plantar erythrodysaesthesia syndrome
     Dosage: ONGOING = CHECKED
     Dates: start: 20201111
  13. ASPIRIN [Concomitant]
     Active Substance: ASPIRIN
     Dosage: ONGOING = CHECKED
     Dates: start: 20170115
  14. HYDROMORPHONE HYDROCHLORIDE [Concomitant]
     Active Substance: HYDROMORPHONE HYDROCHLORIDE
     Indication: Pain
     Dosage: ONGOING = CHECKED
     Dates: start: 20210915
  15. AMOXICILLIN\CLAVULANATE POTASSIUM [Concomitant]
     Active Substance: AMOXICILLIN\CLAVULANATE POTASSIUM
     Indication: Osteonecrosis of jaw
     Dosage: ONGOING = CHECKED
     Dates: start: 20210915
  16. EUTHYROX [Concomitant]
     Active Substance: LEVOTHYROXINE SODIUM
     Dosage: ONGOING = CHECKED
     Dates: start: 20210223
  17. BETAISODONA [Concomitant]
     Active Substance: POVIDONE-IODINE
     Indication: Paronychia
     Dosage: ONGOING = CHECKED
     Dates: start: 20201111
  18. NEBIVOLOL HYDROCHLORIDE [Concomitant]
     Active Substance: NEBIVOLOL HYDROCHLORIDE
     Dosage: ONGOING = CHECKED
     Dates: start: 20170115
  19. NOVALGIN (METAMIZOLE SODIUM) [Concomitant]
     Active Substance: METAMIZOLE SODIUM
     Dosage: ONGOING = CHECKED
     Dates: start: 20210915
  20. DIPRODERM [BETAMETHASONE DIPROPIONATE] [Concomitant]
     Indication: Rash
     Dosage: ONGOING = CHECKED
     Dates: start: 20180621
  21. PANTOPRAZOLE SODIUM [Concomitant]
     Active Substance: PANTOPRAZOLE SODIUM
     Indication: Gastritis
     Dosage: ONGOING = CHECKED
     Dates: start: 20211115
  22. TRAMADOL [Concomitant]
     Active Substance: TRAMADOL\TRAMADOL HYDROCHLORIDE
     Indication: Contusion
     Dosage: ONGOING = CHECKED
     Dates: start: 20220615

REACTIONS (3)
  - Contusion [Recovered/Resolved]
  - Blood bilirubin increased [Recovered/Resolved]
  - Intentional product use issue [Unknown]

NARRATIVE: CASE EVENT DATE: 20211227
